FAERS Safety Report 9153877 (Version 1)
Quarter: 2013Q1

REPORT INFORMATION
  Report Type: Spontaneous
  Country: JP (occurrence: JP)
  Receive Date: 20130311
  Receipt Date: 20130311
  Transmission Date: 20140127
  Serious: Yes (Other)
  Sender: FDA-Public Use
  Company Number: JP-JNJFOC-20120305180

PATIENT
  Age: 7 Decade
  Sex: Male

DRUGS (1)
  1. ITRIZOLE [Suspect]
     Indication: FUNGAL INFECTION
     Route: 042
     Dates: start: 20120308

REACTIONS (1)
  - Injection site extravasation [Recovering/Resolving]
